FAERS Safety Report 17289517 (Version 1)
Quarter: 2020Q1

REPORT INFORMATION
  Report Type: Spontaneous
  Country: US (occurrence: US)
  Receive Date: 20200120
  Receipt Date: 20200120
  Transmission Date: 20200409
  Serious: Yes (Death, Hospitalization)
  Sender: FDA-Public Use
  Company Number: US-SEBELA IRELAND LIMITED-2020SEB00005

PATIENT
  Age: 48 Year
  Sex: Male

DRUGS (1)
  1. AZATHIOPRINE. [Suspect]
     Active Substance: AZATHIOPRINE
     Indication: GRANULOMATOSIS WITH POLYANGIITIS
     Route: 065

REACTIONS (8)
  - Epstein-Barr virus infection [Fatal]
  - Multiple organ dysfunction syndrome [Fatal]
  - Candida infection [Fatal]
  - Haemophagocytic lymphohistiocytosis [Fatal]
  - Immunosuppression [Fatal]
  - Post transplant lymphoproliferative disorder [Fatal]
  - Shock [Fatal]
  - Pseudomonas infection [Fatal]
